FAERS Safety Report 8324046 (Version 2)
Quarter: 2012Q4

REPORT INFORMATION
  Report Type: 
  Country: US (occurrence: US)
  Receive Date: 20120105
  Receipt Date: 20121023
  Transmission Date: 20130627
  Serious: Yes (Hospitalization)
  Sender: FDA-Public Use
  Company Number: US-ABBOTT-11P-163-0887852-00

PATIENT
  Age: 76 None
  Weight: 90.8 kg

DRUGS (2)
  1. SYNTHROID [Suspect]
     Indication: HYPOTHYROIDISM
     Dates: start: 201112, end: 20120513
  2. ARMOUR THYROID [Suspect]
     Dosage: ONE DOSE
     Route: 048
     Dates: start: 20120514, end: 20120514

REACTIONS (12)
  - Cholecystitis infective [Recovered/Resolved]
  - Abdominal pain upper [Recovering/Resolving]
  - Liver function test abnormal [Not Recovered/Not Resolved]
  - Muscular weakness [Not Recovered/Not Resolved]
  - Asthenia [Not Recovered/Not Resolved]
  - Liver injury [Not Recovered/Not Resolved]
  - Weight increased [Not Recovered/Not Resolved]
  - Blood thyroid stimulating hormone abnormal [Not Recovered/Not Resolved]
  - Arthralgia [Not Recovered/Not Resolved]
  - Myalgia [Not Recovered/Not Resolved]
  - Fatigue [Recovering/Resolving]
  - Malaise [Recovered/Resolved]
